FAERS Safety Report 7757755-8 (Version None)
Quarter: 2011Q3

REPORT INFORMATION
  Report Type: 
  Country: None (occurrence: None)
  Receive Date: 20110917
  Receipt Date: 20110905
  Transmission Date: 20111222
  Serious: Yes (Death)
  Sender: FDA-Public Use
  Company Number: BR-MYLANLABS-2011S1018957

PATIENT
  Age: 20 Day
  Sex: Male

DRUGS (12)
  1. FLUCONAZOLE [Concomitant]
     Route: 065
  2. CIPROFLOXACIN [Suspect]
     Route: 065
  3. GENTAMICIN [Concomitant]
     Indication: ABSCESS
     Route: 065
  4. VANCOMYCIN [Suspect]
     Indication: ABSCESS
     Route: 065
  5. AMIKACIN [Concomitant]
     Route: 065
  6. OXACILLIN [Suspect]
     Indication: ABSCESS
     Route: 065
  7. DEXAMETHASONE [Concomitant]
     Indication: TOXIC EPIDERMAL NECROLYSIS
     Dosage: SYSTEMIC DEXAMETHASONE 0.4 MG/KG/DAY FOR 5 DAYS
     Route: 065
  8. CLINDAMYCIN [Concomitant]
     Route: 065
  9. PENICILLIN [Suspect]
     Indication: ABSCESS
     Route: 065
  10. METRONIDAZOLE [Suspect]
     Route: 065
  11. GAMMAGLOBULIN /00025201/ [Concomitant]
     Dosage: 400 MG/KG/DAY FOR 5 DAYS
     Route: 065
  12. TEICOPLANIN [Concomitant]
     Route: 065

REACTIONS (4)
  - MESENTERIC ARTERY THROMBOSIS [None]
  - TOXIC EPIDERMAL NECROLYSIS [None]
  - NECROTISING COLITIS [None]
  - SEPTIC SHOCK [None]
